FAERS Safety Report 12740514 (Version 1)
Quarter: 2016Q3

REPORT INFORMATION
  Report Type: Report from Study
  Country: ES (occurrence: ES)
  Receive Date: 20160913
  Receipt Date: 20160913
  Transmission Date: 20161109
  Serious: Yes (Other)
  Sender: FDA-Public Use
  Company Number: ES-BAXTER-2016BAX046080

PATIENT
  Age: 66 Year

DRUGS (18)
  1. GENOXAL [Suspect]
     Active Substance: CYCLOPHOSPHAMIDE
     Dosage: TREATMENT VISIT 4, REDUCED DOSE
     Route: 065
     Dates: start: 20111212
  2. FLUDARABINE [Suspect]
     Active Substance: FLUDARABINE PHOSPHATE
     Dosage: TREATMENT VISIT 6, REDUCED DOSE
     Route: 065
     Dates: start: 20120209
  3. GENOXAL [Suspect]
     Active Substance: CYCLOPHOSPHAMIDE
     Dosage: TREATMENT VISIT 5, REDUCED DOSE
     Route: 065
     Dates: start: 20120112
  4. RITUXIMAB [Suspect]
     Active Substance: RITUXIMAB
     Dosage: TREATMENT VISIT 3, REDUCED DOSE
     Route: 065
     Dates: start: 20111110
  5. FLUDARABINE [Suspect]
     Active Substance: FLUDARABINE PHOSPHATE
     Dosage: TREATMENT VISIT 2, REDUCED DOSE
     Route: 065
     Dates: start: 20111013
  6. FLUDARABINE [Suspect]
     Active Substance: FLUDARABINE PHOSPHATE
     Dosage: TREATMENT VISIT 4, REDUCED DOSE
     Route: 065
     Dates: start: 20111212
  7. GENOXAL [Suspect]
     Active Substance: CYCLOPHOSPHAMIDE
     Indication: CHRONIC LYMPHOCYTIC LEUKAEMIA
     Dosage: TREATMENT VISIT 1, REDUCED DOSE
     Route: 065
     Dates: start: 20110909, end: 20110911
  8. RITUXIMAB [Suspect]
     Active Substance: RITUXIMAB
     Dosage: TREATMENT VISIT 2, REDUCED DOSE
     Route: 065
     Dates: start: 20111013
  9. RITUXIMAB [Suspect]
     Active Substance: RITUXIMAB
     Dosage: TREATMENT VISIT 5, REDUCED DOSE
     Route: 065
     Dates: start: 20120112
  10. GENOXAL [Suspect]
     Active Substance: CYCLOPHOSPHAMIDE
     Dosage: TREATMENT VISIT 6, REDUCED DOSE
     Route: 065
     Dates: start: 20120209
  11. RITUXIMAB [Suspect]
     Active Substance: RITUXIMAB
     Indication: CHRONIC LYMPHOCYTIC LEUKAEMIA
     Dosage: TREATMENT VISIT 1, COMPLETE DOSE
     Route: 065
     Dates: start: 20110909, end: 20110911
  12. RITUXIMAB [Suspect]
     Active Substance: RITUXIMAB
     Dosage: TREATMENT VISIT 4, REDUCED DOSE
     Route: 065
     Dates: start: 20111212
  13. GENOXAL [Suspect]
     Active Substance: CYCLOPHOSPHAMIDE
     Dosage: TREATMENT VISIT 3, REDUCED DOSE
     Route: 065
     Dates: start: 20111110
  14. FLUDARABINE [Suspect]
     Active Substance: FLUDARABINE PHOSPHATE
     Dosage: TREATMENT VISIT 3, REDUCED DOSE
     Route: 065
     Dates: start: 20111110
  15. GENOXAL [Suspect]
     Active Substance: CYCLOPHOSPHAMIDE
     Dosage: TREATMENT VISIT 2, REDUCED DOSE
     Route: 065
     Dates: start: 20111013
  16. RITUXIMAB [Suspect]
     Active Substance: RITUXIMAB
     Dosage: TREATMENT VISIT 6, REDUCED DOSE
     Route: 065
     Dates: start: 20120209
  17. FLUDARABINE [Suspect]
     Active Substance: FLUDARABINE PHOSPHATE
     Indication: CHRONIC LYMPHOCYTIC LEUKAEMIA
     Dosage: TREATMENT VISIT 1, REDUCED DOSE
     Route: 065
     Dates: start: 20110909, end: 20110911
  18. FLUDARABINE [Suspect]
     Active Substance: FLUDARABINE PHOSPHATE
     Dosage: TREATMENT VISIT 5, REDUCED DOSE
     Route: 065
     Dates: start: 20120112

REACTIONS (2)
  - Herpes zoster [Recovered/Resolved]
  - Haematotoxicity [Unknown]

NARRATIVE: CASE EVENT DATE: 20120307
